FAERS Safety Report 17265213 (Version 4)
Quarter: 2022Q2

REPORT INFORMATION
  Report Type: Report from Study
  Country: US (occurrence: None)
  Receive Date: 20200114
  Receipt Date: 20220412
  Transmission Date: 20220721
  Serious: Yes (Other)
  Sender: FDA-Public Use
  Company Number: US-ROCHE-2518463

PATIENT
  Age: 68 Year
  Sex: Male
  Weight: 71.2 kg

DRUGS (2)
  1. ATEZOLIZUMAB [Suspect]
     Active Substance: ATEZOLIZUMAB
     Indication: Lung adenocarcinoma
     Dosage: OVER 60 MINUTES ON DAYS 1 AND 15. 09/JUL/2019, HE RECEIVED MOST RECENT DOSE OF ATEZOLUZMAB ON (840 M
     Route: 042
     Dates: start: 20190403
  2. COBIMETINIB [Suspect]
     Active Substance: COBIMETINIB
     Indication: Lung adenocarcinoma
     Dosage: 09/JUL/2019, HE RECEIVED MOST RECENT DOSE OF  COBIMETINIB (600 MG). ON 22/JUL/2019, HE RECEIVED MOST
     Route: 048
     Dates: start: 20190403

REACTIONS (3)
  - Ejection fraction decreased [Recovered/Resolved]
  - Rash maculo-papular [Unknown]
  - Infusion site extravasation [Unknown]

NARRATIVE: CASE EVENT DATE: 20190723
